FAERS Safety Report 4382484-0 (Version None)
Quarter: 2004Q2

REPORT INFORMATION
  Report Type: 
  Country: None (occurrence: None)
  Receive Date: 20040621
  Receipt Date: 20040621
  Transmission Date: 20050107
  Serious: Yes (Hospitalization)
  Sender: FDA-Public Use
  Company Number: None

PATIENT
  Age: 87 Year
  Sex: Female
  Weight: 56.6996 kg

DRUGS (1)
  1. TRIAMTERE/HYDROCHLOROTHIAZIDE [Suspect]
     Dosage: 37.5 ONE DAILY ORAL
     Route: 048

REACTIONS (4)
  - BODY TEMPERATURE DECREASED [None]
  - HYPOTENSION [None]
  - MEDICATION ERROR [None]
  - URINARY TRACT INFECTION [None]
